FAERS Safety Report 5980285-0 (Version None)
Quarter: 2008Q4

REPORT INFORMATION
  Report Type: 
  Country: None (occurrence: None)
  Receive Date: 20081205
  Receipt Date: 20081127
  Transmission Date: 20090506
  Serious: Yes (Hospitalization)
  Sender: FDA-Public Use
  Company Number: PHHY2008CL29967

PATIENT
  Age: 78 Year
  Sex: Female

DRUGS (2)
  1. TAREG D [Suspect]
     Indication: HYPERTENSION
     Dosage: 1 DF, QD
     Route: 048
  2. CLONAZEPAM [Concomitant]

REACTIONS (4)
  - ARTHROPATHY [None]
  - JOINT SWELLING [None]
  - KNEE ARTHROPLASTY [None]
  - KNEE OPERATION [None]
